FAERS Safety Report 7338119-8 (Version None)
Quarter: 2011Q1

REPORT INFORMATION
  Report Type: 
  Country: None (occurrence: None)
  Receive Date: 20110308
  Receipt Date: 20110301
  Transmission Date: 20110831
  Serious: Yes (Life-Threatening, Hospitalization, Other)
  Sender: FDA-Public Use
  Company Number: PHHY2011FR13331

PATIENT
  Sex: Male
  Weight: 60 kg

DRUGS (9)
  1. NOVORAPID [Concomitant]
     Dosage: 12 IU, DAILY
     Route: 058
  2. LASIX [Concomitant]
     Dosage: 125 MG, DAILY
     Route: 048
  3. CALCIDIA [Concomitant]
     Route: 048
  4. LANTUS [Concomitant]
     Dosage: 12 IU, DAILY
     Route: 058
  5. HYPERIUM [Concomitant]
     Dosage: 1 MG, DAILY
     Route: 048
  6. EUPRESSYL [Concomitant]
     Dosage: 120 MG, DAILY
     Route: 048
  7. RASILEZ [Suspect]
     Indication: HYPERTENSION
     Dosage: 300 MG, DAILY
     Dates: start: 20100601, end: 20110101
  8. ZANIDIP [Concomitant]
     Dosage: 20 MG, UNK
     Route: 048
  9. ROCALTROL [Concomitant]
     Dosage: UNK

REACTIONS (10)
  - DYSPNOEA [None]
  - TYPE 1 DIABETES MELLITUS [None]
  - CONCOMITANT DISEASE AGGRAVATED [None]
  - DIABETIC NEPHROPATHY [None]
  - RENAL FAILURE [None]
  - HAEMOGLOBIN DECREASED [None]
  - OEDEMA PERIPHERAL [None]
  - BLOOD CREATININE INCREASED [None]
  - HYPERKALAEMIA [None]
  - ARTHRALGIA [None]
